FAERS Safety Report 17003930 (Version 1)
Quarter: 2019Q4

REPORT INFORMATION
  Report Type: Report from Study
  Country: CA (occurrence: CA)
  Receive Date: 20191107
  Receipt Date: 20191107
  Transmission Date: 20200122
  Serious: Yes (Other)
  Sender: FDA-Public Use
  Company Number: CA-ORION CORPORATION ORION PHARMA-TREX2019-5262

PATIENT
  Age: 59 Year
  Sex: Female

DRUGS (10)
  1. REMICADE [Concomitant]
     Active Substance: INFLIXIMAB
     Route: 065
  2. COSENTYX [Suspect]
     Active Substance: SECUKINUMAB
     Indication: PSORIASIS
     Route: 058
  3. BETAMETHASONE DIPROPIONATE;CALCIPOTRIOL [Concomitant]
     Route: 065
  4. METHOTREXATE (TRADE NAME UNKNOWN) [Suspect]
     Active Substance: METHOTREXATE
     Indication: PRODUCT USED FOR UNKNOWN INDICATION
     Route: 065
  5. BETAMETHASONE VALERATE. [Concomitant]
     Active Substance: BETAMETHASONE VALERATE
     Route: 065
  6. ENBREL [Concomitant]
     Active Substance: ETANERCEPT
     Route: 065
  7. COSENTYX [Suspect]
     Active Substance: SECUKINUMAB
     Route: 058
  8. AMEVIVE [Concomitant]
     Active Substance: ALEFACEPT
     Route: 065
  9. DOVONEX [Concomitant]
     Active Substance: CALCIPOTRIENE
     Route: 065
  10. STELARA [Concomitant]
     Active Substance: USTEKINUMAB
     Route: 065

REACTIONS (12)
  - Pulmonary hypertension [Recovering/Resolving]
  - Psoriasis [Recovering/Resolving]
  - Therapeutic response decreased [Recovering/Resolving]
  - Nasal congestion [Recovering/Resolving]
  - Sciatic nerve neuropathy [Recovering/Resolving]
  - Discomfort [Recovering/Resolving]
  - Dyspnoea [Recovering/Resolving]
  - Gait disturbance [Recovering/Resolving]
  - Pruritus [Recovering/Resolving]
  - Sleep apnoea syndrome [Recovering/Resolving]
  - Stress [Recovering/Resolving]
  - Nasopharyngitis [Recovering/Resolving]
